FAERS Safety Report 8100030-2 (Version None)
Quarter: 2012Q1

REPORT INFORMATION
  Report Type: 
  Country: None (occurrence: None)
  Receive Date: 20120129
  Receipt Date: 20111102
  Transmission Date: 20120608
  Serious: No
  Sender: FDA-Public Use
  Company Number: US-ABBOTT-11P-163-0870796-00

PATIENT
  Age: 52 Year
  Sex: Female

DRUGS (13)
  1. ADVAIR DISKUS 100/50 [Concomitant]
     Indication: ASTHMA
     Dosage: ONE PUFF DAILY
  2. THEOPHYLLINE [Concomitant]
     Indication: ASTHMA
     Dosage: ONE TABLET DAILY
  3. HUMIRA [Suspect]
     Indication: RHEUMATOID ARTHRITIS
     Dates: start: 20100101
  4. OXYBUTYNIN [Concomitant]
     Indication: BLADDER DISORDER
     Dosage: ONE TABLET DAILY
  5. FOLIC ACID [Concomitant]
     Indication: PRODUCT USED FOR UNKNOWN INDICATION
     Dosage: 1 MG DAILY TO BE TAKEN WITH METHOTREXATE
  6. TRAZODONE HCL [Concomitant]
     Indication: INSOMNIA
  7. HYDROCODONE BITARTRATE [Concomitant]
     Indication: PAIN
     Dosage: 10/500 - 1/2 TABLET AS NEEDED
  8. ESTRADIOL [Concomitant]
     Indication: HORMONE REPLACEMENT THERAPY
     Dosage: ONE TABLET DAILY
  9. METHOTREXATE [Concomitant]
     Indication: RHEUMATOID ARTHRITIS
     Dosage: 3 TABLETS - WEEKLY
  10. OMEPRAZOLE [Concomitant]
     Indication: DYSPEPSIA
     Dosage: ONE TAB DAILY AS NEEDED
  11. VENTOLIN [Concomitant]
     Indication: ASTHMA
  12. ALBUTEROL [Concomitant]
     Indication: ASTHMA
     Dosage: NEBULIZER, 2-4 DOSES DAILY AS NEEDED
  13. TRAZODONE HCL [Concomitant]
     Indication: DEPRESSION
     Dosage: 50 MG - TWO TABLETS AT NIGHT

REACTIONS (8)
  - SCAB [None]
  - SWELLING [None]
  - RASH PRURITIC [None]
  - RASH PAPULAR [None]
  - RASH ERYTHEMATOUS [None]
  - SWELLING FACE [None]
  - URTICARIA [None]
  - RASH [None]
